FAERS Safety Report 13046357 (Version 1)
Quarter: 2016Q4

REPORT INFORMATION
  Report Type: Spontaneous
  Country: GB (occurrence: GB)
  Receive Date: 20161220
  Receipt Date: 20161220
  Transmission Date: 20170207
  Serious: Yes (Disabling)
  Sender: FDA-Public Use
  Company Number: GB-JNJFOC-20161216006

PATIENT
  Age: 26 Year
  Sex: Male

DRUGS (2)
  1. DEPAKOTE [Concomitant]
     Active Substance: DIVALPROEX SODIUM
     Indication: SCHIZOAFFECTIVE DISORDER
     Route: 065
     Dates: start: 20160707
  2. XEPLION [Suspect]
     Active Substance: PALIPERIDONE PALMITATE
     Indication: SCHIZOAFFECTIVE DISORDER
     Route: 030

REACTIONS (5)
  - Peripheral swelling [Recovered/Resolved]
  - Dyspnoea [Recovered/Resolved]
  - Swelling face [Recovered/Resolved]
  - Fatigue [Recovered/Resolved]
  - Dysarthria [Recovered/Resolved]

NARRATIVE: CASE EVENT DATE: 20160907
